FAERS Safety Report 8145267-1 (Version None)
Quarter: 2012Q1

REPORT INFORMATION
  Report Type: 
  Country: None (occurrence: None)
  Receive Date: 20120217
  Receipt Date: 20120214
  Transmission Date: 20120608
  Serious: Yes (Death, Other)
  Sender: FDA-Public Use
  Company Number: PHHY2012CZ012742

PATIENT
  Sex: Female

DRUGS (10)
  1. PACLITAXEL [Suspect]
     Indication: CHEMOTHERAPY
     Dosage: 175 MG/M2, UNK
  2. PACLITAXEL [Suspect]
     Dosage: 175 MG/M2, UNK
     Dates: start: 20050501, end: 20060201
  3. RADIATION THERAPY [Suspect]
  4. PACLITAXEL [Suspect]
     Dosage: 175 MG/M2, UNK
     Dates: start: 20030601
  5. CISPLATIN [Suspect]
     Indication: CHEMOTHERAPY
     Dosage: 40 MG/M2, UNK
     Dates: start: 20061101, end: 20070301
  6. GEMCITABINE [Concomitant]
  7. DOXORUBICIN HCL [Suspect]
     Indication: CHEMOTHERAPY
     Dosage: 50 MG/M2, UNK
  8. CARBOPLATIN [Suspect]
     Dosage: 6 AUC
     Dates: start: 20030601
  9. CARBOPLATIN [Suspect]
     Indication: CHEMOTHERAPY
     Dosage: 6 AUC
     Dates: start: 20050501, end: 20060201
  10. TAMOXIFEN CITRATE [Concomitant]

REACTIONS (7)
  - ANAEMIA [None]
  - MYELODYSPLASTIC SYNDROME [None]
  - THROMBOCYTOPENIA [None]
  - PNEUMONIA [None]
  - LEUKOPENIA [None]
  - GENERAL PHYSICAL CONDITION ABNORMAL [None]
  - NECROTISING COLITIS [None]
